FAERS Safety Report 13542327 (Version 1)
Quarter: 2017Q2

REPORT INFORMATION
  Report Type: Spontaneous
  Country: US (occurrence: US)
  Receive Date: 20170512
  Receipt Date: 20170512
  Transmission Date: 20170830
  Serious: Yes (Other)
  Sender: FDA-Public Use
  Company Number: US-ROCHE-771863

PATIENT
  Age: 68 Year
  Sex: Female

DRUGS (2)
  1. AVASTIN [Suspect]
     Active Substance: BEVACIZUMAB
     Indication: NEOVASCULAR AGE-RELATED MACULAR DEGENERATION
     Dosage: DATE OF LAST INJECTION: 06 APR 2011,AVASTIN 100MG; DOSE: 1.25 MG/ 0.05 CC. FREQUENCY: ONCE.
     Route: 050
  2. XALATAN [Concomitant]
     Active Substance: LATANOPROST
     Dosage: DOSE: QHS.
     Route: 065

REACTIONS (3)
  - Pruritus [Unknown]
  - Product quality issue [Unknown]
  - Iritis [Recovering/Resolving]

NARRATIVE: CASE EVENT DATE: 20110406
